FAERS Safety Report 22148040 (Version 1)
Quarter: 2023Q1

REPORT INFORMATION
  Report Type: Spontaneous
  Country: US (occurrence: None)
  Receive Date: 20230328
  Receipt Date: 20230328
  Transmission Date: 20230417
  Serious: No
  Sender: FDA-Public Use
  Company Number: None

PATIENT
  Age: 73 Year
  Sex: Female
  Weight: 56.25 kg

DRUGS (12)
  1. LAGEVRIO [Suspect]
     Active Substance: MOLNUPIRAVIR
     Indication: SARS-CoV-2 test positive
     Dosage: FREQUENCY : EVERY 12 HOURS;?
     Route: 048
     Dates: start: 20230318, end: 20230323
  2. COVID-19 VACCINE NOS [Suspect]
     Active Substance: COVID-19 VACCINE NOS
  3. ELIQUIS [Concomitant]
     Active Substance: APIXABAN
  4. DILANTIN [Concomitant]
     Active Substance: PHENYTOIN
  5. FLECAINIDE [Concomitant]
     Active Substance: FLECAINIDE
  6. ESTRING [Concomitant]
     Active Substance: ESTRADIOL
  7. VITAMIN B12 [Concomitant]
     Active Substance: CYANOCOBALAMIN
  8. VITAMIN D [Concomitant]
     Active Substance: VITAMIN D NOS
  9. D-MANNOSE [Concomitant]
  10. MELATONIN [Concomitant]
     Active Substance: MELATONIN
  11. NIACINAMIDE [Concomitant]
     Active Substance: NIACINAMIDE
  12. ACETAMINOPHEN [Concomitant]
     Active Substance: ACETAMINOPHEN

REACTIONS (2)
  - COVID-19 [None]
  - Vaccination failure [None]

NARRATIVE: CASE EVENT DATE: 20230325
